FAERS Safety Report 8219128-3 (Version None)
Quarter: 2012Q1

REPORT INFORMATION
  Report Type: 
  Country: None (occurrence: None)
  Receive Date: 20120319
  Receipt Date: 20120313
  Transmission Date: 20120608
  Serious: Yes (Hospitalization)
  Sender: FDA-Public Use
  Company Number: US-BAYER-2011-019554

PATIENT
  Age: 35 Year
  Sex: Female
  Weight: 79.365 kg

DRUGS (8)
  1. ASACOL [Concomitant]
     Indication: COLITIS ULCERATIVE
     Dosage: 400 MG, UNK
     Route: 048
  2. PREDNISONE [Concomitant]
     Indication: COLITIS ULCERATIVE
     Dosage: 40 MG, QD
     Route: 048
  3. YAZ [Suspect]
     Indication: ORAL CONTRACEPTION
     Dosage: UNK
     Route: 048
     Dates: start: 20080130, end: 20090201
  4. YAZ [Suspect]
     Indication: PREMENSTRUAL SYNDROME
  5. FLAGYL [Concomitant]
     Indication: COLITIS ULCERATIVE
     Route: 048
  6. ASACOL [Concomitant]
     Dosage: 800 MG, TID
  7. METRONIDAZOLE [Concomitant]
  8. IMODIUM [Concomitant]

REACTIONS (7)
  - DEEP VEIN THROMBOSIS [None]
  - PULMONARY EMBOLISM [None]
  - INJURY [None]
  - ANXIETY [None]
  - PAIN [None]
  - EMOTIONAL DISTRESS [None]
  - GENERAL PHYSICAL HEALTH DETERIORATION [None]
